FAERS Safety Report 18649606 (Version 1)
Quarter: 2020Q4

REPORT INFORMATION
  Report Type: Spontaneous
  Country: AT (occurrence: AT)
  Receive Date: 20201222
  Receipt Date: 20201222
  Transmission Date: 20210114
  Serious: Yes (Other)
  Sender: FDA-Public Use
  Company Number: AT-TEVA-2020-AT-1862114

PATIENT
  Age: 44 Year
  Sex: Male

DRUGS (19)
  1. DOXORUBICIN HYDROCHLORIDE. [Suspect]
     Active Substance: DOXORUBICIN HYDROCHLORIDE
     Indication: B-CELL LYMPHOMA
     Dosage: (8 CYCLES - R-CHOP)
     Route: 065
     Dates: end: 200704
  2. PREDNISONE. [Suspect]
     Active Substance: PREDNISONE
     Indication: B-CELL LYMPHOMA
     Dosage: (8 CYCLES - R-CHOP)
     Route: 065
     Dates: end: 20070401
  3. MABTHERA [Suspect]
     Active Substance: RITUXIMAB
     Indication: B-CELL LYMPHOMA
     Dosage: (POLATUZUMAB-RITUXIMAB-RIBOMUSTIN)
     Route: 065
     Dates: start: 20200525
  4. VINCRISTINE SULFATE. [Suspect]
     Active Substance: VINCRISTINE SULFATE
     Indication: B-CELL LYMPHOMA
     Dosage: (8 CYCLES - R-CHOP)
     Route: 065
     Dates: end: 200704
  5. DEXAMETHASONE. [Suspect]
     Active Substance: DEXAMETHASONE
     Indication: B-CELL LYMPHOMA
     Dosage: (3 CYCLES - R-DHAP)
     Route: 065
     Dates: start: 201209, end: 201212
  6. CARBOPLATIN. [Suspect]
     Active Substance: CARBOPLATIN
     Indication: B-CELL LYMPHOMA
     Dosage: (3 CYCLES R-ICE)
     Route: 065
     Dates: end: 20100902
  7. CYTARABINE. [Suspect]
     Active Substance: CYTARABINE
     Indication: B-CELL LYMPHOMA
     Dosage: (3 CYCLES - R-DHAP)
     Route: 065
     Dates: start: 201209, end: 201212
  8. CISPLATIN. [Suspect]
     Active Substance: CISPLATIN
     Indication: B-CELL LYMPHOMA
     Dosage: (8 CYCLES - R-CHOP)
     Route: 065
     Dates: end: 200704
  9. MABTHERA [Suspect]
     Active Substance: RITUXIMAB
     Dosage: (MAINTENANCE)
     Route: 065
     Dates: start: 201301
  10. MABTHERA [Suspect]
     Active Substance: RITUXIMAB
     Dosage: (1 CYCLE MAINTENANCE R-BENDAMUSTINE)
     Route: 065
     Dates: start: 201405
  11. IFOSFAMIDE. [Suspect]
     Active Substance: IFOSFAMIDE
     Indication: B-CELL LYMPHOMA
     Dosage: (3 CYCLES R-ICE)
     Route: 065
     Dates: start: 20100902
  12. MABTHERA [Suspect]
     Active Substance: RITUXIMAB
     Dosage: (3 CYCLES - R-DHAP)
     Route: 065
     Dates: start: 201209, end: 20121201
  13. MABTHERA [Suspect]
     Active Substance: RITUXIMAB
     Dosage: (8 CYCLES - R-CHOP)
     Route: 065
     Dates: end: 20070401
  14. ETOPOSIDE PHOSPHATE [Suspect]
     Active Substance: ETOPOSIDE PHOSPHATE
     Indication: B-CELL LYMPHOMA
     Dosage: (R-ICE)
     Route: 065
     Dates: end: 20100902
  15. BENDAMUSTINE HYDROCHLORIDE. [Suspect]
     Active Substance: BENDAMUSTINE HYDROCHLORIDE
     Indication: B-CELL LYMPHOMA
     Dosage: (1 CYCLE MAINTENANCE)
     Route: 042
     Dates: start: 201405
  16. BENDAMUSTINE HYDROCHLORIDE. [Suspect]
     Active Substance: BENDAMUSTINE HYDROCHLORIDE
     Indication: DIFFUSE LARGE B-CELL LYMPHOMA
     Dosage: (POLATUZUMAB-RITUXIMAB-RIBOMUSTIN)
     Route: 065
     Dates: start: 20200525
  17. PIXUVRI [Suspect]
     Active Substance: PIXANTRONE DIMALEATE
     Indication: B-CELL LYMPHOMA
     Dosage: (4 CYCLES)
     Route: 065
     Dates: end: 201312
  18. POLATUZUMAB VEDOTIN. [Suspect]
     Active Substance: POLATUZUMAB VEDOTIN
     Indication: DIFFUSE LARGE B-CELL LYMPHOMA
     Route: 065
     Dates: start: 20200525
  19. CYCLOPHOSPHAMIDE. [Suspect]
     Active Substance: CYCLOPHOSPHAMIDE
     Indication: B-CELL LYMPHOMA
     Dosage: (8 CYCLES - R-CHOP)
     Route: 065
     Dates: end: 200704

REACTIONS (8)
  - C-reactive protein increased [Unknown]
  - Cardiomyopathy [Unknown]
  - Non-Hodgkin^s lymphoma [Unknown]
  - Leukocytosis [Unknown]
  - Disease recurrence [Recovered/Resolved]
  - Neutrophilia [Unknown]
  - Hepatitis B reactivation [Unknown]
  - Product use in unapproved indication [Unknown]

NARRATIVE: CASE EVENT DATE: 201405
